FAERS Safety Report 23538441 (Version 1)
Quarter: 2024Q1

REPORT INFORMATION
  Report Type: Spontaneous
  Country: NL (occurrence: NL)
  Receive Date: 20240219
  Receipt Date: 20240219
  Transmission Date: 20240410
  Serious: Yes (Life-Threatening, Hospitalization)
  Sender: FDA-Public Use
  Company Number: None

PATIENT
  Age: 68 Year
  Sex: Male
  Weight: 101 kg

DRUGS (3)
  1. VALSARTAN [Suspect]
     Active Substance: VALSARTAN
     Indication: Cardiac disorder
     Dosage: BRAND NAME NOT SPECIFIED
     Route: 065
     Dates: start: 20230213, end: 20231126
  2. LISINOPRIL [Concomitant]
     Active Substance: LISINOPRIL
     Indication: Hypertension
     Dosage: BRAND NAME NOT SPECIFIED
     Route: 065
     Dates: start: 20170101
  3. BRIVIACT [Concomitant]
     Active Substance: BRIVARACETAM
     Indication: Epilepsy
     Dosage: BRIVIACT TABLET FILM COVER 75MG
     Route: 065
     Dates: start: 20220127

REACTIONS (2)
  - Epilepsy [Recovering/Resolving]
  - Hallucination [Recovering/Resolving]
